FAERS Safety Report 5246594-8 (Version None)
Quarter: 2007Q1

REPORT INFORMATION
  Report Type: 
  Country: None (occurrence: None)
  Receive Date: 20070222
  Receipt Date: 20070222
  Transmission Date: 20070707
  Serious: Yes (Hospitalization)
  Sender: FDA-Public Use
  Company Number: None

PATIENT
  Age: 2 Year
  Sex: Male
  Weight: 15 kg

DRUGS (1)
  1. LANACAINE 5% [Suspect]
     Indication: RASH
     Dosage: WHOLE
     Dates: start: 20070221, end: 20070222

REACTIONS (2)
  - CYANOSIS [None]
  - NO THERAPEUTIC RESPONSE [None]
